FAERS Safety Report 25596029 (Version 2)
Quarter: 2025Q3

REPORT INFORMATION
  Report Type: Report from Study
  Country: EU (occurrence: EU)
  Receive Date: 20250723
  Receipt Date: 20250801
  Transmission Date: 20251020
  Serious: Yes (Hospitalization, Other)
  Sender: AUROBINDO
  Company Number: EU-EMA-20140429-rhandoop-123444311

PATIENT
  Age: 27 Year
  Sex: Female

DRUGS (2)
  1. IBUPROFEN [Suspect]
     Active Substance: IBUPROFEN
     Indication: Product used for unknown indication
     Route: 065
  2. NIFLUMIC ACID [Suspect]
     Active Substance: NIFLUMIC ACID
     Indication: Product used for unknown indication
     Route: 065

REACTIONS (10)
  - Acute generalised exanthematous pustulosis [Recovered/Resolved]
  - Agranulocytosis [Recovered/Resolved]
  - Hepatocellular injury [Recovered/Resolved]
  - Neutropenia [Recovered/Resolved]
  - Hepatic function abnormal [Recovered/Resolved]
  - Alanine aminotransferase increased [Recovered/Resolved]
  - Aspartate aminotransferase increased [Recovered/Resolved]
  - C-reactive protein increased [Unknown]
  - Neutrophil count increased [Recovered/Resolved]
  - Nikolsky^s sign positive [Recovered/Resolved]
